FAERS Safety Report 8233886-3 (Version None)
Quarter: 2012Q1

REPORT INFORMATION
  Report Type: 
  Country: None (occurrence: None)
  Receive Date: 20120321
  Receipt Date: 20110908
  Transmission Date: 20120608
  Serious: Yes (Hospitalization, Other)
  Sender: FDA-Public Use
  Company Number: CZ-023763

PATIENT
  Age: 73 Year
  Sex: Female

DRUGS (3)
  1. (CHLORAMBUCIL) [Suspect]
     Indication: CHRONIC LYMPHOCYTIC LEUKAEMIA
     Dosage: 39 MG CYCLIC, ORAL
     Route: 048
     Dates: start: 20110810
  2. (OTHERS) [Concomitant]
  3. (OTHERS) [Suspect]
     Indication: CHRONIC LYMPHOCYTIC LEUKAEMIA
     Dosage: 1000MG PER DAY, INTRAVENOUS (NOT OTHERWISE SPECIFIED)
     Route: 042
     Dates: start: 20110810

REACTIONS (2)
  - PYREXIA [None]
  - ESCHERICHIA URINARY TRACT INFECTION [None]
